FAERS Safety Report 6876334-8 (Version None)
Quarter: 2010Q3

REPORT INFORMATION
  Report Type: 
  Country: None (occurrence: None)
  Receive Date: 20100727
  Receipt Date: 20070712
  Transmission Date: 20110219
  Serious: Yes (Other)
  Sender: FDA-Public Use
  Company Number: US-PFIZER INC-2007037466

PATIENT
  Sex: Female
  Weight: 93.9 kg

DRUGS (1)
  1. CELEBREX [Suspect]
     Indication: SPINAL COLUMN STENOSIS
     Dosage: DAILY
     Dates: start: 19991201

REACTIONS (3)
  - CEREBROVASCULAR DISORDER [None]
  - DEPRESSION [None]
  - MYOCARDIAL INFARCTION [None]
